FAERS Safety Report 5177792-X (Version None)
Quarter: 2006Q4

REPORT INFORMATION
  Report Type: 
  Country: None (occurrence: None)
  Receive Date: 20061218
  Receipt Date: 20060803
  Transmission Date: 20070319
  Serious: No
  Sender: FDA-Public Use
  Company Number: US-AMGEN-KDL188880

PATIENT
  Sex: Female

DRUGS (3)
  1. ENBREL [Suspect]
     Indication: RHEUMATOID ARTHRITIS
     Route: 058
     Dates: start: 20020501
  2. PLAQUENIL [Concomitant]
     Dates: start: 20050101
  3. IMURAN [Concomitant]
     Dates: start: 20050101

REACTIONS (6)
  - ARTHRALGIA [None]
  - DIARRHOEA [None]
  - JOINT INJURY [None]
  - JOINT SWELLING [None]
  - LOCALISED INFECTION [None]
  - TOE DEFORMITY [None]
